FAERS Safety Report 21327282 (Version 1)
Quarter: 2022Q3

REPORT INFORMATION
  Report Type: Spontaneous
  Country: UA (occurrence: None)
  Receive Date: 20220913
  Receipt Date: 20220913
  Transmission Date: 20221026
  Serious: Yes (Other)
  Sender: FDA-Public Use
  Company Number: 2022A309633

PATIENT
  Age: 27 Year
  Sex: Female

DRUGS (8)
  1. DAPAGLIFLOZIN [Suspect]
     Active Substance: DAPAGLIFLOZIN
     Indication: Hypertensive cardiomyopathy
     Route: 048
     Dates: start: 202208
  2. DAPAGLIFLOZIN [Suspect]
     Active Substance: DAPAGLIFLOZIN
     Indication: Atrial fibrillation
     Route: 048
     Dates: start: 202208
  3. DAPAGLIFLOZIN [Suspect]
     Active Substance: DAPAGLIFLOZIN
     Indication: Hypertensive cardiomyopathy
     Route: 048
     Dates: start: 202208
  4. DAPAGLIFLOZIN [Suspect]
     Active Substance: DAPAGLIFLOZIN
     Indication: Atrial fibrillation
     Route: 048
     Dates: start: 202208
  5. METOPROLOL [Suspect]
     Active Substance: METOPROLOL
     Indication: Hypertensive cardiomyopathy
     Route: 048
     Dates: start: 202208
  6. METOPROLOL [Suspect]
     Active Substance: METOPROLOL
     Indication: Atrial fibrillation
     Route: 048
     Dates: start: 202208
  7. ASCORBIC ACID\FERROUS SULFATE [Suspect]
     Active Substance: ASCORBIC ACID\FERROUS SULFATE
     Indication: Hypertensive cardiomyopathy
     Route: 048
     Dates: start: 202208
  8. ASCORBIC ACID\FERROUS SULFATE [Suspect]
     Active Substance: ASCORBIC ACID\FERROUS SULFATE
     Indication: Atrial fibrillation
     Route: 048
     Dates: start: 202208

REACTIONS (2)
  - Seizure [Unknown]
  - Polyuria [Recovered/Resolved]

NARRATIVE: CASE EVENT DATE: 20220801
